FAERS Safety Report 6258257-0 (Version None)
Quarter: 2009Q3

REPORT INFORMATION
  Report Type: 
  Country: None (occurrence: None)
  Receive Date: 20090707
  Receipt Date: 20090625
  Transmission Date: 20100115
  Serious: Yes (Other)
  Sender: FDA-Public Use
  Company Number: DE-BAYER-200923518GPV

PATIENT
  Age: 27 Year
  Sex: Female
  Weight: 66 kg

DRUGS (2)
  1. MIRENA [Suspect]
     Indication: CONTRACEPTION
     Route: 015
     Dates: start: 20010101, end: 20060101
  2. BELLA HEXAL [Suspect]
     Indication: CONTRACEPTION
     Dates: start: 20070101, end: 20080101

REACTIONS (15)
  - ACNE [None]
  - ANXIETY [None]
  - CRYING [None]
  - DEPRESSION [None]
  - DEREALISATION [None]
  - DIARRHOEA [None]
  - DIZZINESS [None]
  - HYPOAESTHESIA [None]
  - JEALOUS DELUSION [None]
  - PALPITATIONS [None]
  - PANIC ATTACK [None]
  - PRURITUS [None]
  - RESTLESSNESS [None]
  - SOMNOLENCE [None]
  - THOUGHT BROADCASTING [None]
